FAERS Safety Report 4828991-5 (Version None)
Quarter: 2005Q4

REPORT INFORMATION
  Report Type: 
  Country: None (occurrence: None)
  Receive Date: 20051027
  Receipt Date: 20041215
  Transmission Date: 20060501
  Serious: Yes (Other)
  Sender: FDA-Public Use
  Company Number: HQWYE294921JUL04

PATIENT
  Age: 55 Year
  Sex: Female
  Weight: 61.74 kg

DRUGS (3)
  1. PREMARIN [Suspect]
     Indication: MENOPAUSE
     Dates: start: 19940101, end: 20030101
  2. ALTACE [Concomitant]
  3. MAXZIDE [Concomitant]

REACTIONS (1)
  - OVARIAN CANCER [None]
